FAERS Safety Report 9201338 (Version 1)
Quarter: 2013Q2

REPORT INFORMATION
  Report Type: Report from Study
  Country: AU (occurrence: AU)
  Receive Date: 20130401
  Receipt Date: 20130401
  Transmission Date: 20140414
  Serious: Yes (Hospitalization, Other)
  Sender: FDA-Public Use
  Company Number: AU-SANOFI-AVENTIS-2013SA030750

PATIENT
  Age: 42 Year
  Sex: Male

DRUGS (4)
  1. LANTUS [Suspect]
     Indication: PRODUCT USED FOR UNKNOWN INDICATION
     Route: 058
     Dates: start: 20100101
  2. LANTUS [Suspect]
     Indication: PRODUCT USED FOR UNKNOWN INDICATION
     Route: 058
     Dates: start: 201302
  3. NOVORAPID [Concomitant]
     Dosage: TDS WITH MEALS
  4. NOVORAPID [Concomitant]
     Dosage: TDS WITH MEALS

REACTIONS (3)
  - Hypoglycaemic seizure [Not Recovered/Not Resolved]
  - Weight decreased [Unknown]
  - Hypoglycaemia [Not Recovered/Not Resolved]
